FAERS Safety Report 23042560 (Version 2)
Quarter: 2023Q4

REPORT INFORMATION
  Report Type: Report from Study
  Country: US (occurrence: US)
  Receive Date: 20231009
  Receipt Date: 20231022
  Transmission Date: 20240109
  Serious: Yes (Hospitalization)
  Sender: FDA-Public Use
  Company Number: US-ABBVIE-5438712

PATIENT
  Sex: Male

DRUGS (1)
  1. IMBRUVICA [Suspect]
     Active Substance: IBRUTINIB
     Indication: Diffuse large B-cell lymphoma
     Route: 048
     Dates: start: 20230930

REACTIONS (5)
  - Seizure [Unknown]
  - Dysphonia [Unknown]
  - Dry mouth [Unknown]
  - Fatigue [Unknown]
  - Burning sensation [Unknown]

NARRATIVE: CASE EVENT DATE: 20230101
